FAERS Safety Report 7052107-0 (Version None)
Quarter: 2010Q4

REPORT INFORMATION
  Report Type: 
  Country: None (occurrence: None)
  Receive Date: 20101019
  Receipt Date: 20101005
  Transmission Date: 20110411
  Serious: Yes (Other)
  Sender: FDA-Public Use
  Company Number: PHHY2010US67625

PATIENT
  Sex: Female

DRUGS (4)
  1. FEMARA [Suspect]
     Indication: BREAST CANCER
  2. TAMOXIFEN CITRATE [Suspect]
  3. RADIATION [Suspect]
  4. SHINGLES SHOT [Suspect]
     Indication: HERPES ZOSTER

REACTIONS (1)
  - HERPES ZOSTER [None]
